FAERS Safety Report 8534503-5 (Version None)
Quarter: 2012Q3

REPORT INFORMATION
  Report Type: 
  Country: None (occurrence: None)
  Receive Date: 20120724
  Receipt Date: 20120712
  Transmission Date: 20120928
  Serious: Yes (Hospitalization)
  Sender: FDA-Public Use
  Company Number: AR-FRI-1000037295

PATIENT
  Age: 65 Year
  Sex: Female

DRUGS (3)
  1. TIOTROPIUM [Concomitant]
     Indication: CHRONIC OBSTRUCTIVE PULMONARY DISEASE
  2. ROFLUMILAST [Suspect]
     Indication: CHRONIC OBSTRUCTIVE PULMONARY DISEASE
     Dosage: 500 MCG
  3. FLUTICASONE PROPIONATE/SALMETEROL [Concomitant]
     Indication: CHRONIC OBSTRUCTIVE PULMONARY DISEASE
     Dosage: 1000 MCG / 100 MCG

REACTIONS (6)
  - DYSPNOEA [None]
  - NASAL CONGESTION [None]
  - RESPIRATORY FAILURE [None]
  - NASAL DISCOMFORT [None]
  - RHINORRHOEA [None]
  - BRONCHOSPASM [None]
